FAERS Safety Report 14233768 (Version 1)
Quarter: 2017Q4

REPORT INFORMATION
  Report Type: Spontaneous
  Country: US (occurrence: US)
  Receive Date: 20171128
  Receipt Date: 20171128
  Transmission Date: 20180321
  Serious: Yes (Disabling, Other)
  Sender: FDA-Public Use
  Company Number: US-REGENERON PHARMACEUTICALS, INC.-2017-27394

PATIENT

DRUGS (2)
  1. EYLEA [Suspect]
     Active Substance: AFLIBERCEPT
     Dosage: OS, LAST PRIOR TO EVENT
     Route: 031
     Dates: start: 20171031, end: 20171031
  2. EYLEA [Suspect]
     Active Substance: AFLIBERCEPT
     Indication: NEOVASCULAR AGE-RELATED MACULAR DEGENERATION
     Dosage: MONTHLY, OS
     Route: 031
     Dates: start: 201610

REACTIONS (5)
  - Blindness unilateral [Unknown]
  - Vitreous haze [Recovering/Resolving]
  - Non-infectious endophthalmitis [Recovering/Resolving]
  - Eye pain [Recovering/Resolving]
  - Anterior chamber cell [Recovering/Resolving]

NARRATIVE: CASE EVENT DATE: 20171101
